FAERS Safety Report 11715471 (Version 2)
Quarter: 2015Q4

REPORT INFORMATION
  Report Type: Spontaneous
  Country: US (occurrence: US)
  Receive Date: 20151104
  Receipt Date: 20151110
  Transmission Date: 20160304
  Serious: No
  Sender: FDA-Public Use
  Company Number: US-ELI_LILLY_AND_COMPANY-US201106001833

PATIENT
  Age: 74 Year
  Sex: Female
  Weight: 85.71 kg

DRUGS (6)
  1. FORTEO [Suspect]
     Active Substance: TERIPARATIDE
     Dosage: 20 UG, QD
     Dates: start: 20110613
  2. FORTEO [Suspect]
     Active Substance: TERIPARATIDE
     Dosage: 20 UG, QD
     Dates: start: 20110613
  3. HYDROCHLOROTHIAZIDE. [Concomitant]
     Active Substance: HYDROCHLOROTHIAZIDE
  4. FORTEO [Suspect]
     Active Substance: TERIPARATIDE
     Indication: OSTEOPOROSIS
     Dosage: 20 UG, QD
     Dates: start: 2010, end: 20110516
  5. VITAMIN D3 [Concomitant]
     Active Substance: CHOLECALCIFEROL
     Dosage: 5000 IU, QD
  6. CALCIUM [Concomitant]
     Active Substance: CALCIUM
     Dosage: 1250 MG, QD

REACTIONS (6)
  - Bone pain [Recovered/Resolved]
  - Blood potassium decreased [Recovered/Resolved]
  - Sleep disorder due to a general medical condition [Unknown]
  - Pain [Unknown]
  - Wrist fracture [Unknown]
  - Fall [Recovered/Resolved]

NARRATIVE: CASE EVENT DATE: 201104
